FAERS Safety Report 14145865 (Version 1)
Quarter: 2017Q4

REPORT INFORMATION
  Report Type: Spontaneous
  Country: US (occurrence: US)
  Receive Date: 20171031
  Receipt Date: 20171031
  Transmission Date: 20180321
  Serious: No
  Sender: FDA-Public Use
  Company Number: US-BAYER-2017-192691

PATIENT
  Sex: Female

DRUGS (7)
  1. LIDOCAIN [Concomitant]
     Active Substance: LIDOCAINE
     Dosage: UNK
  2. ATENOLOL. [Concomitant]
     Active Substance: ATENOLOL
     Dosage: UNK
  3. BAYER LOW DOSE [Suspect]
     Active Substance: ASPIRIN
     Indication: PAIN
     Dosage: DAILY
     Route: 048
     Dates: start: 2000
  4. ACETAMINOPHEN. [Concomitant]
     Active Substance: ACETAMINOPHEN
     Dosage: UNK
  5. BAYER ASPIRIN 500 MG [Suspect]
     Active Substance: ASPIRIN
     Indication: PAIN
     Dosage: 2 DF, TID
     Route: 048
     Dates: start: 2000
  6. ALEVE [Suspect]
     Active Substance: NAPROXEN SODIUM
     Indication: PAIN
     Dosage: UNK
     Route: 048
  7. LISINOPRIL. [Concomitant]
     Active Substance: LISINOPRIL
     Dosage: UNK

REACTIONS (4)
  - Incorrect drug administration duration [Unknown]
  - Drug ineffective [Unknown]
  - Inappropriate prescribing [Unknown]
  - Product use issue [Unknown]
